FAERS Safety Report 5648542-5 (Version None)
Quarter: 2008Q1

REPORT INFORMATION
  Report Type: 
  Country: None (occurrence: None)
  Receive Date: 20080304
  Receipt Date: 20080219
  Transmission Date: 20080703
  Serious: Yes (Other)
  Sender: FDA-Public Use
  Company Number: AR-GENENTECH-256677

PATIENT
  Sex: Male

DRUGS (3)
  1. AVASTIN [Suspect]
     Indication: COLON CANCER
     Dosage: 360 GRAIN, UNK
     Route: 042
     Dates: start: 20080123
  2. CAPECITABINE [Concomitant]
     Indication: COLON CANCER
  3. OXALIPLATIN [Concomitant]
     Indication: COLON CANCER

REACTIONS (2)
  - ARTHRALGIA [None]
  - DEHYDRATION [None]
